FAERS Safety Report 18887924 (Version 2)
Quarter: 2021Q2

REPORT INFORMATION
  Report Type: Report from Study
  Country: ES (occurrence: ES)
  Receive Date: 20210213
  Receipt Date: 20210511
  Transmission Date: 20210717
  Serious: Yes (Congenital Anomaly, Other)
  Sender: FDA-Public Use
  Company Number: ES-VISTAPHARM, INC.-VER202102-000642

PATIENT
  Sex: Male
  Weight: 2.21 kg

DRUGS (3)
  1. BUSCOPAN COMPOSITUM [Concomitant]
     Route: 064
  2. AMOXICILLIN?CLAVULANIC [Concomitant]
     Route: 064
  3. HYDROCODONE AND ACETAMINOPHEN [Suspect]
     Active Substance: ACETAMINOPHEN\HYDROCODONE
     Route: 064

REACTIONS (2)
  - Foetal exposure during pregnancy [Unknown]
  - Ductus arteriosus premature closure [Recovered/Resolved]
